FAERS Safety Report 21211294 (Version 1)
Quarter: 2022Q3

REPORT INFORMATION
  Report Type: Report from Study
  Country: US (occurrence: US)
  Receive Date: 20220815
  Receipt Date: 20220815
  Transmission Date: 20221027
  Serious: Yes (Hospitalization)
  Sender: FDA-Public Use
  Company Number: US-Accord-272854

PATIENT
  Sex: Male
  Weight: 73.94 kg

DRUGS (1)
  1. CLOZAPINE [Suspect]
     Active Substance: CLOZAPINE
     Indication: Schizoaffective disorder
     Dosage: 100MG IN THE MORNING, 400MG AT NIGHT (500MG TOTAL PER DAY)/ DAILY / BY MOUTH

REACTIONS (1)
  - Suicidal ideation [Unknown]
